FAERS Safety Report 7488085-X (Version None)
Quarter: 2011Q2

REPORT INFORMATION
  Report Type: 
  Country: None (occurrence: None)
  Receive Date: 20110518
  Receipt Date: 20110513
  Transmission Date: 20111010
  Serious: Yes (Other)
  Sender: FDA-Public Use
  Company Number: DE-PFIZER INC-2011103254

PATIENT
  Age: 59 Year
  Sex: Female

DRUGS (2)
  1. DIBLOCIN [Suspect]
     Indication: CORONARY ARTERY DISEASE
     Dosage: 12 MG, 1X/DAY
     Route: 048
     Dates: start: 20090101
  2. DIBLOCIN [Suspect]
     Indication: HYPERTENSION

REACTIONS (6)
  - LARYNGITIS [None]
  - COUGH [None]
  - FATIGUE [None]
  - INFECTION [None]
  - SINUSITIS [None]
  - BRONCHITIS [None]
